FAERS Safety Report 5719622-0 (Version None)
Quarter: 2008Q2

REPORT INFORMATION
  Report Type: 
  Country: None (occurrence: None)
  Receive Date: 20080428
  Receipt Date: 20080422
  Transmission Date: 20081010
  Serious: Yes (Hospitalization, Other)
  Sender: FDA-Public Use
  Company Number: FR-BRISTOL-MYERS SQUIBB COMPANY-14161301

PATIENT
  Age: 33 Year
  Sex: Female
  Weight: 91 kg

DRUGS (6)
  1. IXABEPILONE [Suspect]
     Indication: BREAST CANCER
     Dosage: CUMULATIVE DOSE SINCE FIRST ADMINISTRATION: 100 MG
     Route: 042
     Dates: start: 20080317, end: 20080317
  2. ENDOXAN [Suspect]
     Indication: BREAST CANCER
     Dosage: CUMULATIVE DOSE SINCE FIRST ADMINISTRATION: 3000 MG
     Route: 042
     Dates: start: 20080204, end: 20080204
  3. EPIRUBICIN HCL [Suspect]
     Indication: BREAST CANCER
     Dosage: CUMULATIVE DOSE SINCE FIRST ADMINISTRATION: 600 MG
     Route: 042
     Dates: start: 20080204, end: 20080204
  4. FLUOROURACIL [Suspect]
     Indication: BREAST CANCER
     Route: 042
     Dates: start: 20080204, end: 20080204
  5. NEULASTA [Concomitant]
     Dosage: ALSO GIVEN FROM 18MAR08
     Dates: start: 20080115, end: 20080101
  6. GRANOCYTE [Concomitant]
     Dates: start: 20080303, end: 20080307

REACTIONS (7)
  - ASTHENIA [None]
  - BRAIN SCAN ABNORMAL [None]
  - CONSTIPATION [None]
  - DIARRHOEA [None]
  - DIZZINESS [None]
  - FEBRILE NEUTROPENIA [None]
  - ORAL FUNGAL INFECTION [None]
